FAERS Safety Report 21087152 (Version 1)
Quarter: 2022Q3

REPORT INFORMATION
  Report Type: Spontaneous
  Country: US (occurrence: None)
  Receive Date: 20220714
  Receipt Date: 20220714
  Transmission Date: 20221027
  Serious: Yes (Hospitalization, Other)
  Sender: FDA-Public Use
  Company Number: None

PATIENT
  Age: 72 Year
  Sex: Male
  Weight: 70 kg

DRUGS (2)
  1. SPIRONOLACTONE [Suspect]
     Active Substance: SPIRONOLACTONE
     Indication: Hypertension
     Dosage: 25 MG EVERY DAY PO
     Route: 048
     Dates: start: 20220112, end: 20220411
  2. LOSARTAN POTASSIUM [Suspect]
     Active Substance: LOSARTAN POTASSIUM
     Indication: Hypertension
     Dosage: 100  MG EVERY DAY PO?
     Route: 048
     Dates: start: 20111031, end: 20220413

REACTIONS (4)
  - Hyperkalaemia [None]
  - Blood creatinine increased [None]
  - Acute kidney injury [None]
  - Blood urea increased [None]

NARRATIVE: CASE EVENT DATE: 20220411
